FAERS Safety Report 20843553 (Version 1)
Quarter: 2022Q2

REPORT INFORMATION
  Report Type: Spontaneous
  Country: US (occurrence: None)
  Receive Date: 20220517
  Receipt Date: 20220517
  Transmission Date: 20220721
  Serious: No
  Sender: FDA-Public Use
  Company Number: None

PATIENT
  Sex: Female

DRUGS (1)
  1. LENALIDOMIDE [Suspect]
     Active Substance: LENALIDOMIDE
     Indication: Plasma cell myeloma
     Dosage: 5MG DAILY ORAL
     Route: 048
     Dates: start: 202203, end: 202204

REACTIONS (3)
  - Loss of therapeutic response [None]
  - Neoplasm malignant [None]
  - Disease progression [None]
